FAERS Safety Report 5811055-1 (Version None)
Quarter: 2008Q3

REPORT INFORMATION
  Report Type: 
  Country: None (occurrence: None)
  Receive Date: 20080716
  Receipt Date: 20080715
  Transmission Date: 20090109
  Serious: Yes (Other)
  Sender: FDA-Public Use
  Company Number: US-JNJFOC-20080701359

PATIENT
  Age: 40 Year
  Sex: Female
  Weight: 122.47 kg

DRUGS (3)
  1. RISPERDAL CONSTA [Suspect]
     Route: 030
  2. RISPERDAL CONSTA [Suspect]
     Indication: SCHIZOPHRENIA
     Route: 030
  3. COUMADIN [Suspect]
     Indication: THROMBOSIS
     Route: 048

REACTIONS (1)
  - PROTHROMBIN LEVEL ABNORMAL [None]
